FAERS Safety Report 9856236 (Version 1)
Quarter: 2014Q1

REPORT INFORMATION
  Report Type: Spontaneous
  Country: NO (occurrence: NO)
  Receive Date: 20140130
  Receipt Date: 20140130
  Transmission Date: 20141002
  Serious: Yes (Other)
  Sender: FDA-Public Use
  Company Number: PHHY2014NO010687

PATIENT
  Age: 69 Year
  Sex: Female

DRUGS (7)
  1. GLIVEC [Suspect]
     Indication: CHRONIC MYELOID LEUKAEMIA
     Route: 048
     Dates: start: 20110519
  2. METHOTREXAT [Concomitant]
     Dosage: UNK UKN, UNK
  3. PREDNISOLON [Concomitant]
     Dosage: UNK UKN, UNK
  4. NEXIAM [Concomitant]
     Dosage: UNK UKN, UNK
  5. FOLSYRE NAF [Concomitant]
     Dosage: UNK UKN, UNK
  6. ALENDRONIC ACID [Concomitant]
  7. CALCIGRAN FORTE [Concomitant]
     Indication: RHEUMATOID ARTHRITIS
     Dosage: UNK UKN, UNK

REACTIONS (2)
  - Urinary incontinence [Not Recovered/Not Resolved]
  - Faecal incontinence [Not Recovered/Not Resolved]
